FAERS Safety Report 9386168 (Version 1)
Quarter: 2013Q3

REPORT INFORMATION
  Report Type: Spontaneous
  Country: US (occurrence: US)
  Receive Date: 20130707
  Receipt Date: 20130707
  Transmission Date: 20140515
  Serious: Yes (Hospitalization)
  Sender: FDA-Public Use
  Company Number: US-UCBSA-090668

PATIENT
  Sex: 0

DRUGS (2)
  1. VIMPAT [Suspect]
  2. VIMPAT [Suspect]

REACTIONS (3)
  - Dizziness [Unknown]
  - Vomiting [Unknown]
  - Feeling abnormal [Recovered/Resolved]
